FAERS Safety Report 9685362 (Version 1)
Quarter: 2013Q4

REPORT INFORMATION
  Report Type: Spontaneous
  Country: US (occurrence: None)
  Receive Date: 20131112
  Receipt Date: 20131112
  Transmission Date: 20140711
  Serious: No
  Sender: FDA-Public Use
  Company Number: None

PATIENT
  Age: 7 Month
  Sex: Female
  Weight: 7.26 kg

DRUGS (1)
  1. ALBUTEROL SULFATE [Suspect]
     Route: 055
     Dates: start: 20130909, end: 20131031

REACTIONS (2)
  - Wheezing [None]
  - Cough [None]
